FAERS Safety Report 4401139-7 (Version None)
Quarter: 2004Q3

REPORT INFORMATION
  Report Type: 
  Country: None (occurrence: None)
  Receive Date: 20040907
  Receipt Date: 20031113
  Transmission Date: 20050211
  Serious: No
  Sender: FDA-Public Use
  Company Number: US-BRISTOL-MYERS SQUIBB COMPANY-12435525

PATIENT
  Age: 62 Year
  Sex: Male
  Weight: 136 kg

DRUGS (9)
  1. COUMADIN [Suspect]
     Indication: HEART RATE INCREASED
     Dosage: START 8/03 OR 9/03 ON 5MG; UP TO 10MG; DOWN TO 7.5MG, + NOW 5MG 3X/WEEK + 7.5MG 2X'S/WEEK.
     Route: 048
     Dates: start: 20030101
  2. METFORMIN HCL [Concomitant]
     Indication: DIABETES MELLITUS NON-INSULIN-DEPENDENT
  3. AVANDIA [Concomitant]
  4. FUROSEMIDE [Concomitant]
  5. DIGITEK [Concomitant]
  6. POTASSIUM [Concomitant]
  7. VIOXX [Concomitant]
  8. LIPITOR [Concomitant]
  9. VERAPAMIL [Concomitant]

REACTIONS (1)
  - BLOOD GLUCOSE INCREASED [None]
